FAERS Safety Report 4460511-X (Version None)
Quarter: 2004Q3

REPORT INFORMATION
  Report Type: 
  Country: None (occurrence: None)
  Receive Date: 20040923
  Receipt Date: 20040909
  Transmission Date: 20050211
  Serious: Yes (Disabling)
  Sender: FDA-Public Use
  Company Number: 2004AC00268

PATIENT
  Age: 68 Year
  Sex: Male

DRUGS (4)
  1. BUPIVACAINE [Suspect]
     Indication: ANAESTHESIA
     Dosage: 10 MG ED
     Route: 008
  2. FENTANYL [Suspect]
     Indication: ANAESTHESIA
     Dosage: 25 UG
  3. DIAZEPAM [Concomitant]
  4. ATROPINE [Concomitant]

REACTIONS (3)
  - ANAESTHETIC COMPLICATION [None]
  - CAUDA EQUINA SYNDROME [None]
  - DRUG TOXICITY [None]
